FAERS Safety Report 15549835 (Version 5)
Quarter: 2018Q4

REPORT INFORMATION
  Report Type: Spontaneous
  Country: DE (occurrence: DE)
  Receive Date: 20181025
  Receipt Date: 20181129
  Transmission Date: 20190205
  Serious: Yes (Other)
  Sender: FDA-Public Use
  Company Number: PHHY2018DE136180

PATIENT
  Age: 69 Year
  Sex: Female

DRUGS (11)
  1. LEVODOPA+CARBIDOPA [Suspect]
     Active Substance: CARBIDOPA\LEVODOPA
     Indication: PARKINSONISM
     Dosage: 100/25MG, 6 TABLETS DAILY
     Route: 048
  2. BUDIPINE [Suspect]
     Active Substance: BUDIPINE
     Dosage: 30 MG, TID (ONE AT 8:00AM, ONE AT 12:00 NOON AND ONE AT 6:00PM)
     Route: 065
  3. BUDIPINE [Suspect]
     Active Substance: BUDIPINE
     Indication: PARKINSONISM
     Dosage: 10 MG, TID (ONE AT 8:00AM, ONE AT 12:00 NOON AND ONE AT 6:00PM))
     Route: 065
  4. BUDIPINE [Suspect]
     Active Substance: BUDIPINE
     Dosage: 20 MG, TID (1 AT 8:00AM, 1 AT 12:00 PM, 1 AT 6:00PM)
     Route: 065
  5. LEVOTHYROXINE. [Concomitant]
     Active Substance: LEVOTHYROXINE
     Indication: HYPOTHYROIDISM
     Dosage: 100 UG, UNK (1/2 A DAY AT 7:00 AM), 0.5 UG/L
     Route: 065
  6. LORAZEPAM. [Concomitant]
     Active Substance: LORAZEPAM
     Indication: DEPRESSION
     Dosage: 1 MG, UNK (IF REQUIRED, 1/2-2 TABLETS WITHIN 24 H)
     Route: 065
  7. LEVODOPA+CARBIDOPA [Suspect]
     Active Substance: CARBIDOPA\LEVODOPA
     Dosage: 4 TABLETS DAILY: 100\25 MG
     Route: 048
  8. PROPRANOLOL [Concomitant]
     Active Substance: PROPRANOLOL HYDROCHLORIDE
     Indication: HYPERTENSION
     Dosage: 40 MG, Q12H
     Route: 065
  9. RAMIPRIL. [Concomitant]
     Active Substance: RAMIPRIL
     Dosage: 2.5 MG, QHS (AT 6.00 PM)
     Route: 065
  10. CLONAZEPAM. [Suspect]
     Active Substance: CLONAZEPAM
     Indication: SLEEP DISORDER
     Dosage: 0.5 MG, QD( IN ORDER TO TREAT SLEEP DISORDERS, SHE WAS SCHEDULED TO RECEIVE SHORT ACTING ZOPICLONE
     Route: 065
  11. RAMIPRIL. [Concomitant]
     Active Substance: RAMIPRIL
     Indication: HYPERTENSION
     Dosage: 2.5 MG, QD (AT 7.00 AM)
     Route: 065

REACTIONS (5)
  - Psychotic disorder [Unknown]
  - Fatigue [Unknown]
  - Delirium [Unknown]
  - Psychotic symptom [Unknown]
  - Dizziness [Unknown]
